FAERS Safety Report 19429386 (Version 1)
Quarter: 2021Q2

REPORT INFORMATION
  Report Type: Spontaneous
  Country: FR (occurrence: FR)
  Receive Date: 20210617
  Receipt Date: 20210617
  Transmission Date: 20210717
  Serious: Yes (Other)
  Sender: FDA-Public Use
  Company Number: FR-TEVA-2021-FR-1921829

PATIENT
  Age: 72 Year
  Sex: Male
  Weight: 94 kg

DRUGS (2)
  1. METHOTREXATE. [Suspect]
     Active Substance: METHOTREXATE
     Indication: RHEUMATOID ARTHRITIS
     Dosage: 1 INJECTION / WEEK:UNIT DOSE:20MILLIGRAM
     Route: 058
     Dates: start: 2018
  2. BENEPALI 50 MG, SOLUTION INJECTABLE EN SERINGUE PREREMPLIE [Suspect]
     Active Substance: ETANERCEPT
     Indication: RHEUMATOID ARTHRITIS
     Dosage: 1 INJECTION / WEEK:UNIT DOSE:1DOSAGEFORM
     Route: 058
     Dates: start: 201903, end: 202102

REACTIONS (1)
  - Demyelinating polyneuropathy [Not Recovered/Not Resolved]

NARRATIVE: CASE EVENT DATE: 202005
